FAERS Safety Report 16628393 (Version 2)
Quarter: 2019Q3

REPORT INFORMATION
  Report Type: Spontaneous
  Country: US (occurrence: US)
  Receive Date: 20190724
  Receipt Date: 20190903
  Transmission Date: 20191004
  Serious: No
  Sender: FDA-Public Use
  Company Number: US-ASTRAZENECA-2019SF02781

PATIENT
  Age: 65 Year
  Sex: Male
  Weight: 54.4 kg

DRUGS (14)
  1. GOCOVRI [Suspect]
     Active Substance: AMANTADINE
     Indication: DYSKINESIA
     Route: 048
     Dates: start: 20180531, end: 20181212
  2. NEUPRO [Concomitant]
     Active Substance: ROTIGOTINE
  3. OMEPRAZOLE. [Suspect]
     Active Substance: OMEPRAZOLE
     Route: 048
  4. ATORVASTATIN [Concomitant]
     Active Substance: ATORVASTATIN
     Dates: start: 201906
  5. LIDOCAINE PATCHES [Concomitant]
     Active Substance: LIDOCAINE
  6. GOCOVRI [Suspect]
     Active Substance: AMANTADINE
     Indication: DYSKINESIA
     Dosage: 68.5 MG, EVERY 48 HOURS
     Route: 048
     Dates: start: 20190619
  7. SINEMET [Concomitant]
     Active Substance: CARBIDOPA\LEVODOPA
  8. ROSUVASTATIN. [Suspect]
     Active Substance: ROSUVASTATIN
     Dosage: UNK
     Route: 048
     Dates: end: 201906
  9. GOCOVRI [Suspect]
     Active Substance: AMANTADINE
     Indication: DYSKINESIA
     Route: 048
     Dates: start: 20181213, end: 201902
  10. ZANTAC [Concomitant]
     Active Substance: RANITIDINE HYDROCHLORIDE
  11. NEUPRO [Concomitant]
     Active Substance: ROTIGOTINE
  12. DIAZEPAM. [Concomitant]
     Active Substance: DIAZEPAM
  13. TYLENOL [Concomitant]
     Active Substance: ACETAMINOPHEN
  14. NAPROXEN. [Concomitant]
     Active Substance: NAPROXEN

REACTIONS (6)
  - Weight increased [Unknown]
  - Skin discolouration [Recovered/Resolved]
  - Sleep disorder [Unknown]
  - Contusion [Not Recovered/Not Resolved]
  - Joint swelling [Unknown]
  - Hypersensitivity [Unknown]
